FAERS Safety Report 6440337-8 (Version None)
Quarter: 2009Q4

REPORT INFORMATION
  Report Type: 
  Country: None (occurrence: None)
  Receive Date: 20091113
  Receipt Date: 20091030
  Transmission Date: 20100525
  Serious: Yes (Hospitalization)
  Sender: FDA-Public Use
  Company Number: PHHY2009NL41466

PATIENT
  Sex: Female
  Weight: 75 kg

DRUGS (9)
  1. TASIGNA [Suspect]
     Indication: CHRONIC MYELOID LEUKAEMIA
     Dosage: 200 MG, BID
     Route: 065
     Dates: start: 20090706, end: 20090911
  2. LASIX [Concomitant]
     Dosage: 40 MG, QD
     Route: 065
     Dates: start: 20080101
  3. METOPROLOL TARTRATE [Concomitant]
     Dosage: 50 MG
     Route: 065
     Dates: start: 20050101
  4. SIMVASTATIN [Concomitant]
     Indication: CORONARY ARTERY BYPASS
     Dosage: 20 MG, QD
     Route: 065
     Dates: start: 20050101
  5. ACE INHIBITORS AND DIURETICS [Concomitant]
     Indication: CORONARY ARTERY BYPASS
  6. HYDROCHLOROTHIAZIDE [Concomitant]
     Indication: CORONARY ARTERY BYPASS
     Dosage: 25 MG, UNK
  7. PERINDOPRIL [Concomitant]
     Indication: CORONARY ARTERY BYPASS
     Dosage: 2 MG, UNK
  8. ASCAL [Concomitant]
     Indication: CORONARY ARTERY BYPASS
     Dosage: 100 MG, UNK
  9. SELOKEEN [Concomitant]
     Indication: CORONARY ARTERY BYPASS
     Dosage: 100 MG, UNK

REACTIONS (9)
  - DEHYDRATION [None]
  - LETHARGY [None]
  - MALAISE [None]
  - RASH [None]
  - RENAL FAILURE [None]
  - RENAL FAILURE ACUTE [None]
  - TUBULOINTERSTITIAL NEPHRITIS [None]
  - URINE FLOW DECREASED [None]
  - URINE OUTPUT DECREASED [None]
